FAERS Safety Report 4785305-7 (Version None)
Quarter: 2005Q3

REPORT INFORMATION
  Report Type: 
  Country: None (occurrence: None)
  Receive Date: 20050914
  Receipt Date: 20040719
  Transmission Date: 20060218
  Serious: Yes (Death, Hospitalization)
  Sender: FDA-Public Use
  Company Number: 163-20785-04070453

PATIENT
  Age: 67 Year
  Sex: Female
  Weight: 103.8737 kg

DRUGS (35)
  1. THALOMID [Suspect]
     Indication: MALIGNANT MELANOMA
     Dosage: 200 MG, QHS, ORAL
     Route: 048
     Dates: start: 20040426
  2. PROLEUKIN [Suspect]
     Indication: MALIGNANT MELANOMA
     Dosage: 57 MILLION UNITS, Q8H, INTRAVENOUS
     Route: 042
     Dates: start: 20040426, end: 20040430
  3. WARFARIN SODIUM [Concomitant]
  4. ONDANSETRON [Concomitant]
  5. ENOXAPARIN SODIUM [Concomitant]
  6. ACETAMINOPHEN [Concomitant]
  7. LOPERAMIDE HCL [Concomitant]
  8. MEPERIDINE HCL [Concomitant]
  9. PROMETHAZINE [Concomitant]
  10. MAGNESIUM SULFATE [Concomitant]
  11. FLUCONAZOLE [Concomitant]
  12. LEVOFLOXACIN [Concomitant]
  13. SODIUM POLYSTYRENE SULFONATE (SODIUM POLYSTYRENE SULFONATE) [Concomitant]
  14. FUROSEMIDE [Concomitant]
  15. CLONIDINE [Concomitant]
  16. VERAPAMIL [Concomitant]
  17. POTASSIUM CHLORIDE [Concomitant]
  18. TEMAZEPAM [Concomitant]
  19. ALBUTEROL [Concomitant]
  20. IPRATROPIUM BROMIDE [Concomitant]
  21. ESOMEPRAZOLE (ESOMEPRAZOLE) [Concomitant]
  22. ALBUMIN (ALBUMIN NORMAL HUMAN SODIUM) [Concomitant]
  23. METOCLOPRAMIDE [Concomitant]
  24. MIDAZOLAM HCL [Concomitant]
  25. ERYTHROPOIETIN (ERYTHROPOIETIN) [Concomitant]
  26. MORPHINE [Concomitant]
  27. HEPARIN [Concomitant]
  28. ALUMINOX (ALUMINIUM HYDROXIDE GEL) [Concomitant]
  29. FERROUS SULFATE TAB [Concomitant]
  30. CALCIUM GLUCONATE [Concomitant]
  31. ETOMIDATE [Concomitant]
  32. PROTEIN SUPPLEMENT (PROTEIN SUPPLEMENT) [Concomitant]
  33. MILK OF MAGNESIA TAB [Concomitant]
  34. DOCUSATE (DOCUSATE) [Concomitant]
  35. TUBE FEEDING /PULMONARY STRESS [Concomitant]

REACTIONS (4)
  - DEATH [None]
  - PNEUMONIA [None]
  - RESPIRATORY FAILURE [None]
  - STAPHYLOCOCCAL SEPSIS [None]
